FAERS Safety Report 8737429 (Version 2)
Quarter: 2013Q4

REPORT INFORMATION
  Report Type: Report from Study
  Country: JP (occurrence: JP)
  Receive Date: 20120822
  Receipt Date: 20131108
  Transmission Date: 20140711
  Serious: Yes (Other)
  Sender: FDA-Public Use
  Company Number: JP-009507513-2012SP018375

PATIENT
  Age: 63 Year
  Sex: Male
  Weight: 63 kg

DRUGS (24)
  1. PEGINTERFERON ALFA-2B [Suspect]
     Indication: HEPATITIS C
     Dosage: 80 ?G/KG, QW
     Route: 058
     Dates: start: 20120228
  2. REBETOL [Suspect]
     Indication: HEPATITIS C
     Dosage: 400 MG, QD
     Route: 048
     Dates: start: 20120228, end: 20120301
  3. REBETOL [Suspect]
     Dosage: 400 MG, QD
     Route: 048
     Dates: start: 20120305, end: 20120317
  4. REBETOL [Suspect]
     Dosage: 400 MG, QD
     Route: 048
     Dates: start: 20120323
  5. REBETOL [Suspect]
     Route: 048
     Dates: start: 20120224, end: 20120227
  6. INVESTIGATIONAL DRUG (UNSPECIFIED) [Suspect]
     Indication: HEPATITIS C
     Dosage: 2250 MG, QD
     Route: 048
     Dates: start: 20120228, end: 20120301
  7. INVESTIGATIONAL DRUG (UNSPECIFIED) [Suspect]
     Dosage: 1500 MG, QD
     Route: 048
     Dates: start: 20120305, end: 20120317
  8. INVESTIGATIONAL DRUG (UNSPECIFIED) [Suspect]
     Dosage: 1500 MG, QD
     Route: 048
     Dates: start: 20120327, end: 20120403
  9. INVESTIGATIONAL DRUG (UNSPECIFIED) [Suspect]
     Dosage: 750 MG, QD
     Route: 048
     Dates: start: 20120404
  10. URSO [Concomitant]
     Indication: HEPATITIS C
     Dosage: UPDATE: 14 MAY 2012
     Route: 048
  11. URSO [Concomitant]
     Indication: HEPATITIS C
     Route: 048
  12. NIZATIDINE [Concomitant]
     Indication: PRODUCT USED FOR UNKNOWN INDICATION
     Dosage: UPDATE: 14 MAY 2012
     Route: 048
  13. PEGINTRON [Suspect]
     Indication: HEPATITIS C
     Dosage: 1.3MCG/KG/WEEK
     Route: 058
     Dates: start: 20120228
  14. PEGINTRON [Suspect]
     Dosage: 1.5MCG/KG/WEEK
     Route: 058
     Dates: start: 20120224, end: 20120224
  15. TELAVIC [Suspect]
     Indication: HEPATITIS C
     Route: 048
     Dates: start: 20120228, end: 20120301
  16. TELAVIC [Suspect]
     Route: 048
     Dates: start: 20120305, end: 20120317
  17. TELAVIC [Suspect]
     Route: 048
     Dates: start: 20120327, end: 20120403
  18. TELAVIC [Suspect]
     Route: 048
     Dates: start: 20120404
  19. TELAVIC [Suspect]
     Route: 048
     Dates: start: 20120224, end: 20120226
  20. ACINON [Concomitant]
     Indication: PROPHYLAXIS
     Route: 048
  21. DIGOSIN [Concomitant]
     Indication: CARDIOVASCULAR EVENT PROPHYLAXIS
     Route: 048
  22. EFONIDIPINE HYDROCHLORIDE ETHANOLATE [Concomitant]
     Indication: HYPERTENSION
     Route: 048
  23. DIOVAN [Concomitant]
     Indication: HYPERTENSION
     Route: 048
  24. WARFARIN [Concomitant]
     Indication: THROMBOSIS PROPHYLAXIS
     Route: 048

REACTIONS (4)
  - Vomiting [Recovered/Resolved]
  - Vomiting [Recovering/Resolving]
  - Nausea [Recovering/Resolving]
  - Renal disorder [Recovered/Resolved]
